FAERS Safety Report 21606604 (Version 2)
Quarter: 2023Q1

REPORT INFORMATION
  Report Type: Spontaneous
  Country: GB (occurrence: GB)
  Receive Date: 20221117
  Receipt Date: 20230208
  Transmission Date: 20230417
  Serious: Yes (Death, Other)
  Sender: FDA-Public Use
  Company Number: None

PATIENT
  Age: 29 Year
  Sex: Male

DRUGS (6)
  1. PREGABALIN [Suspect]
     Active Substance: PREGABALIN
     Indication: Product used for unknown indication
     Dosage: UNK (PREGABALIN)
     Route: 065
  2. PREGABALIN [Suspect]
     Active Substance: PREGABALIN
     Dosage: UNK (LYRICA)
     Route: 065
  3. DIAZEPAM [Suspect]
     Active Substance: DIAZEPAM
     Indication: Product used for unknown indication
     Dosage: UNK
     Route: 065
  4. ALCOHOL [Suspect]
     Active Substance: ALCOHOL
     Indication: Product used for unknown indication
     Dosage: UNK
     Route: 065
  5. TRAMADOL HYDROCHLORIDE [Suspect]
     Active Substance: TRAMADOL HYDROCHLORIDE
     Indication: Product used for unknown indication
     Dosage: UNK (TRAMADOL HCL )
     Route: 065
  6. TRAMADOL HYDROCHLORIDE [Suspect]
     Active Substance: TRAMADOL HYDROCHLORIDE
     Dosage: UNK (TRAMADOL SANDOZ)
     Route: 065

REACTIONS (12)
  - Prescription drug used without a prescription [Fatal]
  - Hanging [Fatal]
  - Injury [Fatal]
  - Eye contusion [Fatal]
  - Contusion [Fatal]
  - Blood alcohol increased [Fatal]
  - Contraindicated product administered [Fatal]
  - Completed suicide [Fatal]
  - Drug abuse [Fatal]
  - Aggression [Fatal]
  - Behaviour disorder [Fatal]
  - Intentional product misuse [Fatal]

NARRATIVE: CASE EVENT DATE: 20170811
